FAERS Safety Report 24446120 (Version 1)
Quarter: 2024Q4

REPORT INFORMATION
  Report Type: Spontaneous
  Country: JP (occurrence: JP)
  Receive Date: 20241016
  Receipt Date: 20241016
  Transmission Date: 20250115
  Serious: Yes (Other)
  Sender: AMGEN
  Company Number: JP-AMGEN-JPNSP2024201423

PATIENT

DRUGS (1)
  1. ROMOSOZUMAB [Suspect]
     Active Substance: ROMOSOZUMAB
     Indication: Osteoporosis
     Dosage: 210 MILLIGRAM, QMO
     Route: 058

REACTIONS (15)
  - Pulmonary infarction [Unknown]
  - Cerebral infarction [Unknown]
  - Cerebral haemorrhage [Unknown]
  - Pneumonia [Unknown]
  - Extremity necrosis [Unknown]
  - Cellulitis [Unknown]
  - Lumbar vertebral fracture [Unknown]
  - Humerus fracture [Unknown]
  - Radius fracture [Unknown]
  - Hypozincaemia [Unknown]
  - Hypocalcaemia [Unknown]
  - Fatigue [Unknown]
  - Injection site swelling [Unknown]
  - Injection site pain [Unknown]
  - General physical health deterioration [Unknown]
